FAERS Safety Report 26057041 (Version 1)
Quarter: 2025Q4

REPORT INFORMATION
  Report Type: Spontaneous
  Country: US (occurrence: US)
  Receive Date: 20251118
  Receipt Date: 20251118
  Transmission Date: 20260118
  Serious: No
  Sender: RANBAXY
  Company Number: US-SUN PHARMACEUTICAL INDUSTRIES LTD-2025R1-533459

PATIENT
  Sex: Female

DRUGS (1)
  1. LEQSELVI [Suspect]
     Active Substance: DEURUXOLITINIB PHOSPHATE
     Indication: Alopecia areata
     Dosage: 8 MILLIGRAM, BID
     Route: 048
     Dates: start: 20250818

REACTIONS (1)
  - Product dose omission issue [Unknown]
